FAERS Safety Report 25887347 (Version 3)
Quarter: 2025Q4

REPORT INFORMATION
  Report Type: Report from Study
  Country: US (occurrence: US)
  Receive Date: 20251006
  Receipt Date: 20251021
  Transmission Date: 20260118
  Serious: Yes (Hospitalization)
  Sender: ABBVIE
  Company Number: US-ABBVIE-6477621

PATIENT
  Age: 73 Year
  Sex: Male

DRUGS (1)
  1. VYALEV [Suspect]
     Active Substance: FOSCARBIDOPA\FOSLEVODOPA
     Indication: Parkinson^s disease
     Route: 058
     Dates: start: 20250812, end: 20251006

REACTIONS (12)
  - Hypersomnia [Recovering/Resolving]
  - Wheelchair user [Not Recovered/Not Resolved]
  - Joint range of motion decreased [Unknown]
  - Walking aid user [Unknown]
  - Listless [Not Recovered/Not Resolved]
  - Feeling abnormal [Unknown]
  - Blood pressure decreased [Unknown]
  - Hallucination [Not Recovered/Not Resolved]
  - Urinary incontinence [Not Recovered/Not Resolved]
  - Anal incontinence [Not Recovered/Not Resolved]
  - Drug ineffective [Unknown]
  - Asthenia [Not Recovered/Not Resolved]

NARRATIVE: CASE EVENT DATE: 20250101
